FAERS Safety Report 17362912 (Version 21)
Quarter: 2022Q2

REPORT INFORMATION
  Report Type: Spontaneous
  Country: KR (occurrence: KR)
  Receive Date: 20200203
  Receipt Date: 20220630
  Transmission Date: 20220721
  Serious: Yes (Hospitalization, Other)
  Sender: FDA-Public Use
  Company Number: KR-ALEXION PHARMACEUTICALS INC.-A202001066

PATIENT
  Age: 56 Year
  Sex: Female

DRUGS (8)
  1. SOLIRIS [Suspect]
     Active Substance: ECULIZUMAB
     Dosage: 1200 MG, Q2W
     Route: 042
     Dates: start: 20200213
  2. SOLIRIS [Suspect]
     Active Substance: ECULIZUMAB
     Indication: Atypical haemolytic uraemic syndrome
     Dosage: 900 MG, QW
     Route: 042
     Dates: start: 20200117, end: 20200207
  3. SOLIRIS [Suspect]
     Active Substance: ECULIZUMAB
     Dosage: 900 MG, UNK
     Route: 010
     Dates: start: 20200709
  4. AMLODIPINE [Concomitant]
     Active Substance: AMLODIPINE BESYLATE
     Indication: Product used for unknown indication
     Dosage: 2.5 MG, UNK
     Route: 065
  5. AMLODIPINE MALEATE\OLMESARTAN MEDOXOMIL [Concomitant]
     Active Substance: AMLODIPINE MALEATE\OLMESARTAN MEDOXOMIL
     Indication: Product used for unknown indication
     Dosage: 5/20 MG, UNK
     Route: 065
  6. EZETIMIBE\SIMVASTATIN [Concomitant]
     Active Substance: EZETIMIBE\SIMVASTATIN
     Indication: Product used for unknown indication
     Dosage: 10/20 MG, UNK
     Route: 065
  7. FERROUS SULFATE [Concomitant]
     Active Substance: FERROUS SULFATE
     Indication: Product used for unknown indication
     Route: 065
  8. TENELIGLIPTIN [Concomitant]
     Active Substance: TENELIGLIPTIN
     Indication: Product used for unknown indication
     Dosage: 20 MG, UNK
     Route: 065

REACTIONS (16)
  - Thrombotic microangiopathy [Unknown]
  - Platelet count decreased [Recovered/Resolved]
  - Cardiac hypertrophy [Recovered/Resolved]
  - Immune thrombocytopenia [Not Recovered/Not Resolved]
  - Seizure [Recovered/Resolved]
  - Schistocytosis [Recovered/Resolved]
  - Haematology test abnormal [Recovered/Resolved]
  - Arteriovenous fistula operation [Recovered/Resolved]
  - Drug ineffective [Recovered/Resolved]
  - Renal impairment [Recovered/Resolved]
  - Oedema [Recovered/Resolved]
  - Syncope [Not Recovered/Not Resolved]
  - Hypertension [Recovered/Resolved]
  - Pulmonary oedema [Unknown]
  - Total complement activity increased [Recovered/Resolved]
  - Blood creatinine increased [Unknown]

NARRATIVE: CASE EVENT DATE: 20200101
